FAERS Safety Report 11914175 (Version 1)
Quarter: 2016Q1

REPORT INFORMATION
  Report Type: Spontaneous
  Country: DE (occurrence: DE)
  Receive Date: 20160113
  Receipt Date: 20160113
  Transmission Date: 20160526
  Serious: Yes (Hospitalization, Other)
  Sender: FDA-Public Use
  Company Number: DE-JNJFOC-20160108291

PATIENT
  Age: 68 Year
  Sex: Male

DRUGS (1)
  1. XARELTO [Suspect]
     Active Substance: RIVAROXABAN
     Indication: SUICIDAL IDEATION
     Dosage: 98 TABLETS OF 20 MG
     Route: 048
     Dates: start: 20160104

REACTIONS (2)
  - Suicide attempt [Unknown]
  - Depression [Unknown]

NARRATIVE: CASE EVENT DATE: 20160104
